FAERS Safety Report 16627909 (Version 4)
Quarter: 2019Q4

REPORT INFORMATION
  Report Type: Spontaneous
  Country: GR (occurrence: GR)
  Receive Date: 20190724
  Receipt Date: 20191114
  Transmission Date: 20200122
  Serious: Yes (Hospitalization)
  Sender: FDA-Public Use
  Company Number: GR-MYLANLABS-2019M1068356

PATIENT
  Age: 60 Year
  Sex: Female
  Weight: 84 kg

DRUGS (9)
  1. AVELUMAB [Suspect]
     Active Substance: AVELUMAB
     Dosage: 800 MG, CYCLIC (ONCE IN 14 DAYS)
     Route: 042
     Dates: start: 20190102
  2. AVELUMAB [Suspect]
     Active Substance: AVELUMAB
     Indication: SMALL CELL LUNG CANCER
     Dosage: 800 MG, CYCLIC (ONCE IN 14 DAYS)
     Route: 042
     Dates: end: 20190102
  3. ZANTAC [Concomitant]
     Active Substance: RANITIDINE HYDROCHLORIDE
     Indication: PREMEDICATION
     Dosage: 1 AMP (ONCE EVERY 3 WEEKS)
     Route: 042
     Dates: start: 20181119, end: 20190124
  4. ETOPOSIDE. [Suspect]
     Active Substance: ETOPOSIDE
     Indication: SMALL CELL LUNG CANCER
     Dosage: 200 MG, CYCLIC (ONCE IN 21 DAYS)
     Route: 042
     Dates: start: 20181119, end: 20190124
  5. CARBOPLATIN. [Suspect]
     Active Substance: CARBOPLATIN
     Dosage: 600 MG,CYCLIC (ONCE IN 21 DAYS)
     Route: 042
     Dates: end: 20190123
  6. DEXATON                            /00016002/ [Concomitant]
     Active Substance: DEXAMETHASONE SODIUM PHOSPHATE
     Indication: PREMEDICATION
     Dosage: 2 AMP (ONCE IN EVERY 3 WEEKS)
     Route: 042
     Dates: start: 20181119, end: 20190124
  7. ALOXI [Concomitant]
     Active Substance: PALONOSETRON HYDROCHLORIDE
     Indication: PREMEDICATION
     Dosage: 1 CAPS (ONCE EVERY 3 WEEKS)
     Route: 042
     Dates: start: 20181119, end: 20190124
  8. CARBOPLATIN. [Suspect]
     Active Substance: CARBOPLATIN
     Indication: SMALL CELL LUNG CANCER
     Dosage: 600 MG,CYCLIC (ONCE IN 21 DAYS)
     Route: 042
     Dates: start: 20181119
  9. FENISTIL [Concomitant]
     Active Substance: DIMETHINDENE
     Indication: PREMEDICATION
     Dosage: 1 AMP (ONCE EVERY 3 WEEKS)
     Route: 042
     Dates: start: 20181119, end: 20190124

REACTIONS (1)
  - Embolism [Recovered/Resolved]

NARRATIVE: CASE EVENT DATE: 20190124
